FAERS Safety Report 25917305 (Version 2)
Quarter: 2025Q4

REPORT INFORMATION
  Report Type: Spontaneous
  Country: US (occurrence: US)
  Receive Date: 20251014
  Receipt Date: 20251021
  Transmission Date: 20260118
  Serious: Yes (Other)
  Sender: ELI LILLY AND COMPANY
  Company Number: US-ELI_LILLY_AND_COMPANY-US202510008524

PATIENT
  Age: 73 Year
  Sex: Female

DRUGS (2)
  1. EMGALITY [Suspect]
     Active Substance: GALCANEZUMAB-GNLM
     Indication: Product used for unknown indication
     Dosage: 1 DOSAGE FORM, OTHER (LOADING DOSE)
     Route: 065
     Dates: start: 20250707, end: 20250707
  2. EMGALITY [Suspect]
     Active Substance: GALCANEZUMAB-GNLM
     Dosage: UNK UNK, UNKNOWN
     Route: 065
     Dates: start: 202509

REACTIONS (14)
  - Dyspnoea [Unknown]
  - Ankle fracture [Unknown]
  - Headache [Unknown]
  - Dizziness [Unknown]
  - Skin burning sensation [Unknown]
  - Presyncope [Unknown]
  - Blue toe syndrome [Unknown]
  - Hypoaesthesia [Unknown]
  - Feeling cold [Unknown]
  - Dyspnoea [Recovered/Resolved]
  - Vertigo [Recovered/Resolved]
  - Vertigo [Unknown]
  - Hypersensitivity [Unknown]
  - Incorrect dose administered [Unknown]

NARRATIVE: CASE EVENT DATE: 20250701
